FAERS Safety Report 16713175 (Version 1)
Quarter: 2019Q3

REPORT INFORMATION
  Report Type: Spontaneous
  Country: US (occurrence: US)
  Receive Date: 20190817
  Receipt Date: 20190817
  Transmission Date: 20191004
  Serious: Yes (Other)
  Sender: FDA-Public Use
  Company Number: US-APOTEX-2019AP020486

PATIENT
  Age: 50 Year
  Sex: Male

DRUGS (1)
  1. PAROXETINE. [Suspect]
     Active Substance: PAROXETINE
     Indication: PRODUCT USED FOR UNKNOWN INDICATION
     Dosage: UNK
     Route: 065

REACTIONS (6)
  - Apparent death [Unknown]
  - Craniocerebral injury [Unknown]
  - Gait inability [Unknown]
  - Brain injury [Unknown]
  - Thinking abnormal [Unknown]
  - Motor dysfunction [Unknown]
